FAERS Safety Report 11015757 (Version 2)
Quarter: 2015Q2

REPORT INFORMATION
  Report Type: Spontaneous
  Country: US (occurrence: US)
  Receive Date: 20150412
  Receipt Date: 20150525
  Transmission Date: 20150821
  Serious: No
  Sender: FDA-Public Use
  Company Number: US-JNJFOC-20140511099

PATIENT
  Age: 31 Year
  Sex: Female
  Weight: 49.9 kg

DRUGS (20)
  1. NICOMID [Concomitant]
     Indication: ACNE
     Route: 048
  2. CAMILA [Concomitant]
     Active Substance: NORETHINDRONE
     Indication: ORAL CONTRACEPTION
     Route: 048
     Dates: start: 2009
  3. FLONASE [Concomitant]
     Active Substance: FLUTICASONE PROPIONATE
     Indication: SEASONAL ALLERGY
     Route: 065
     Dates: start: 2009
  4. PEPTO-BISMOL [Concomitant]
     Active Substance: BISMUTH SUBSALICYLATE\CALCIUM CARBONATE
     Indication: FREQUENT BOWEL MOVEMENTS
     Route: 048
     Dates: start: 201108
  5. SIMPONI [Suspect]
     Active Substance: GOLIMUMAB
     Indication: FEMALE GENITAL TRACT FISTULA
     Route: 058
     Dates: start: 201308
  6. AMBIEN CR [Concomitant]
     Active Substance: ZOLPIDEM TARTRATE
     Indication: INSOMNIA
     Route: 048
     Dates: start: 201403
  7. LOMOTIL [Concomitant]
     Active Substance: ATROPINE SULFATE\DIPHENOXYLATE HYDROCHLORIDE
     Indication: FREQUENT BOWEL MOVEMENTS
     Route: 048
     Dates: start: 201104
  8. IMITREX [Concomitant]
     Active Substance: SUMATRIPTAN\SUMATRIPTAN SUCCINATE
     Indication: MIGRAINE
     Route: 065
     Dates: start: 2009
  9. METHOTREXATE [Concomitant]
     Active Substance: METHOTREXATE
     Indication: COLITIS ULCERATIVE
     Route: 058
     Dates: start: 201310
  10. FOLIC ACID. [Concomitant]
     Active Substance: FOLIC ACID
     Indication: PROPHYLAXIS
     Route: 048
     Dates: start: 201308
  11. IRON [Concomitant]
     Active Substance: IRON
     Route: 048
  12. VITAMIN B12 [Concomitant]
     Active Substance: CYANOCOBALAMIN
     Route: 048
  13. BONIVA [Concomitant]
     Active Substance: IBANDRONATE SODIUM
     Indication: OSTEOPENIA
     Route: 048
     Dates: start: 2012
  14. BELLADONNA [Concomitant]
     Active Substance: ATROPA BELLADONNA
     Indication: FREQUENT BOWEL MOVEMENTS
     Route: 054
     Dates: start: 201103
  15. CALCIUM [Concomitant]
     Active Substance: CALCIUM
     Route: 048
  16. ACZONE 5% GEL [Concomitant]
     Indication: ACNE
     Route: 061
  17. METROGEL [Concomitant]
     Active Substance: METRONIDAZOLE
     Indication: ACNE
     Route: 061
  18. SIMPONI [Suspect]
     Active Substance: GOLIMUMAB
     Indication: COLITIS ULCERATIVE
     Route: 058
     Dates: start: 201308
  19. TYLENOL [Concomitant]
     Active Substance: ACETAMINOPHEN
     Indication: HEADACHE
     Route: 065
  20. MULTIVITAMINS [Concomitant]
     Active Substance: VITAMINS
     Route: 048

REACTIONS (4)
  - Product use issue [Unknown]
  - Drug dose omission [Unknown]
  - Device leakage [Unknown]
  - Product quality issue [Unknown]

NARRATIVE: CASE EVENT DATE: 201308
